FAERS Safety Report 8167783 (Version 4)
Quarter: 2017Q4

REPORT INFORMATION
  Report Type: Report from Study
  Country: DE (occurrence: DE)
  Receive Date: 20111004
  Receipt Date: 20171114
  Transmission Date: 20180321
  Serious: Yes (Death, Other)
  Sender: FDA-Public Use
  Company Number: DE-CELGENEUS-062-50794-11092480

PATIENT
  Age: 77 Year
  Sex: Male
  Weight: 80 kg

DRUGS (9)
  1. IDARUBICINE [Suspect]
     Active Substance: IDARUBICIN
     Indication: ACUTE MYELOID LEUKAEMIA
     Route: 065
  2. TAZOBACTAM [Suspect]
     Active Substance: TAZOBACTAM
     Indication: INFECTION PROPHYLAXIS
     Route: 041
     Dates: start: 20110915, end: 20110916
  3. PIPERACILLIN [Suspect]
     Active Substance: PIPERACILLIN
     Indication: INFECTION PROPHYLAXIS
     Dosage: 12 GRAM
     Route: 041
     Dates: start: 20110915, end: 20110916
  4. TAVANIC [Concomitant]
     Active Substance: LEVOFLOXACIN
     Indication: INFECTION PROPHYLAXIS
     Route: 041
     Dates: start: 20110914, end: 20110915
  5. VIDAZA [Suspect]
     Active Substance: AZACITIDINE
     Route: 065
     Dates: start: 20110627, end: 20110701
  6. CYTARABINE. [Suspect]
     Active Substance: CYTARABINE
     Indication: ACUTE MYELOID LEUKAEMIA
     Route: 065
     Dates: start: 20110914, end: 20110916
  7. LENOGRASTIM [Suspect]
     Active Substance: LENOGRASTIM
     Indication: ACUTE MYELOID LEUKAEMIA
     Route: 065
     Dates: start: 20110923, end: 20110929
  8. VIDAZA [Suspect]
     Active Substance: AZACITIDINE
     Indication: ACUTE MYELOID LEUKAEMIA
     Route: 065
     Dates: start: 20110528, end: 20110601
  9. ETOPOSIDE. [Suspect]
     Active Substance: ETOPOSIDE
     Indication: ACUTE MYELOID LEUKAEMIA
     Route: 065

REACTIONS (3)
  - Chills [Recovered/Resolved]
  - Urosepsis [Fatal]
  - Leukaemia recurrent [Unknown]

NARRATIVE: CASE EVENT DATE: 20110915
